FAERS Safety Report 26096107 (Version 1)
Quarter: 2025Q4

REPORT INFORMATION
  Report Type: Spontaneous
  Country: IN (occurrence: IN)
  Receive Date: 20251127
  Receipt Date: 20251127
  Transmission Date: 20260117
  Serious: Yes (Death, Other)
  Sender: STRIDES
  Company Number: IN-STRIDES ARCOLAB LIMITED-2025SP014639

PATIENT
  Age: 37 Year
  Sex: Male

DRUGS (8)
  1. TACROLIMUS [Suspect]
     Active Substance: TACROLIMUS
     Indication: Immunosuppressant drug therapy
     Dosage: MAINTENANCE THERAPY
     Route: 065
  2. TACROLIMUS [Suspect]
     Active Substance: TACROLIMUS
     Dosage: IMMUNOSUPPRESSIVE THERAPY WAS REDUCED
     Route: 065
  3. PREDNISONE [Suspect]
     Active Substance: PREDNISONE
     Indication: Immunosuppressant drug therapy
     Dosage: MAINTENANCE THERAPY
     Route: 065
  4. PREDNISONE [Suspect]
     Active Substance: PREDNISONE
     Dosage: IMMUNOSUPPRESSIVE THERAPY WAS REDUCED
     Route: 065
  5. MYCOPHENOLATE MOFETIL [Suspect]
     Active Substance: MYCOPHENOLATE MOFETIL
     Indication: Immunosuppressant drug therapy
     Dosage: MAINTENANCE THERAPY
     Route: 065
  6. MYCOPHENOLATE MOFETIL [Suspect]
     Active Substance: MYCOPHENOLATE MOFETIL
     Dosage: IMMUNOSUPPRESSIVE THERAPY WAS REDUCED
     Route: 065
  7. THYMOGLOBULIN [Suspect]
     Active Substance: LAPINE T-LYMPHOCYTE IMMUNE GLOBULIN
     Indication: Immunosuppressant drug therapy
     Dosage: INDUCTION THERAPY
     Route: 065
     Dates: start: 2019
  8. THYMOGLOBULIN [Suspect]
     Active Substance: LAPINE T-LYMPHOCYTE IMMUNE GLOBULIN
     Dosage: IMMUNOSUPPRESSIVE THERAPY WAS REDUCED
     Route: 065

REACTIONS (3)
  - Malignant fibrous histiocytoma [Fatal]
  - Drug ineffective [Unknown]
  - Drug ineffective for unapproved indication [Unknown]

NARRATIVE: CASE EVENT DATE: 20210101
